FAERS Safety Report 10342412 (Version 2)
Quarter: 2014Q3

REPORT INFORMATION
  Report Type: Spontaneous
  Country: KR (occurrence: KR)
  Receive Date: 20140725
  Receipt Date: 20140725
  Transmission Date: 20150326
  Serious: Yes (Hospitalization, Other)
  Sender: FDA-Public Use
  Company Number: KR-UCBSA-2014005103

PATIENT

DRUGS (7)
  1. FUROSEMIDE. [Suspect]
     Active Substance: FUROSEMIDE
     Indication: PULMONARY OEDEMA
     Dosage: 20 MG
     Route: 064
  2. PERLINGANIT [Suspect]
     Active Substance: NITROGLYCERIN
     Dosage: 12 MCG/MIN
     Route: 064
  3. SUXAMETHONIUM [Suspect]
     Active Substance: SUCCINYLCHOLINE
     Indication: ANAESTHESIA
     Dosage: 100 MG
     Route: 064
  4. THIOPENTAL SODIUM. [Concomitant]
     Active Substance: THIOPENTAL SODIUM
     Indication: ANAESTHESIA
     Dosage: 250 MG, UNK
     Route: 064
  5. ATRACURIUM [Suspect]
     Active Substance: ATRACURIUM
     Indication: HYPOTONIA
     Dosage: 40 MG
     Route: 064
  6. FUROSEMIDE. [Suspect]
     Active Substance: FUROSEMIDE
     Dosage: 40 MG
     Route: 064
  7. PERLINGANIT [Suspect]
     Active Substance: NITROGLYCERIN
     Indication: PULMONARY OEDEMA
     Dosage: 8 MCG/MIN
     Route: 064

REACTIONS (7)
  - Foetal distress syndrome [Recovered/Resolved]
  - Foetal heart rate increased [None]
  - Caesarean section [None]
  - Maternal drugs affecting foetus [None]
  - Respiration abnormal [Recovered/Resolved]
  - Foetal exposure during pregnancy [Unknown]
  - Apgar score abnormal [None]
